FAERS Safety Report 5188343-8 (Version None)
Quarter: 2006Q4

REPORT INFORMATION
  Report Type: 
  Country: None (occurrence: None)
  Receive Date: 20061221
  Receipt Date: 20020104
  Transmission Date: 20070319
  Serious: Yes (Hospitalization)
  Sender: FDA-Public Use
  Company Number: FR-ROCHE-304370

PATIENT
  Age: 28 Month
  Sex: Female

DRUGS (8)
  1. INVIRASE [Suspect]
     Indication: DRUG USE FOR UNKNOWN INDICATION
     Dosage: FROM THE 17TH WEEK UNTIL THE END OF PREGNANCY.
     Dates: start: 19971115, end: 19980415
  2. VIDEX [Suspect]
     Indication: DRUG USE FOR UNKNOWN INDICATION
     Dosage: FROM THE 26TH WEEK OF GESTATION.
     Dates: start: 19980114
  3. RETROVIR [Suspect]
     Indication: DRUG USE FOR UNKNOWN INDICATION
     Dates: start: 19971015, end: 19980115
  4. NORVIR [Suspect]
     Indication: DRUG USE FOR UNKNOWN INDICATION
     Dosage: FROM 17TH WEEK TO THE END OF PREGNANCY.
     Dates: start: 19971115, end: 19980415
  5. EPIVIR [Suspect]
     Indication: DRUG USE FOR UNKNOWN INDICATION
     Dates: start: 19971115, end: 19980115
  6. ZERIT [Suspect]
     Indication: DRUG USE FOR UNKNOWN INDICATION
     Route: 064
     Dates: start: 19980114
  7. RETROVIR [Concomitant]
  8. EPIVIR [Concomitant]

REACTIONS (2)
  - DRUG EXPOSURE DURING PREGNANCY [None]
  - NUCLEAR MAGNETIC RESONANCE IMAGING BRAIN ABNORMAL [None]
